FAERS Safety Report 7149104-3 (Version None)
Quarter: 2010Q4

REPORT INFORMATION
  Report Type: 
  Country: None (occurrence: None)
  Receive Date: 20101209
  Receipt Date: 20101208
  Transmission Date: 20110411
  Serious: Yes (Other)
  Sender: FDA-Public Use
  Company Number: NL-PFIZER INC-2010161569

PATIENT
  Sex: Male

DRUGS (3)
  1. NELFINAVIR MESYLATE [Suspect]
     Indication: PROPHYLAXIS AGAINST HIV INFECTION
     Dosage: 1250 MG, 1X/DAY
  2. NEVIRAPINE [Suspect]
     Indication: PROPHYLAXIS AGAINST HIV INFECTION
     Dosage: 200 MG, SINGLE
  3. LAMIVUDINE + ZIDOVUDINE [Suspect]
     Indication: PROPHYLAXIS AGAINST HIV INFECTION
     Dosage: 450 MG, 1X/DAY

REACTIONS (3)
  - ALANINE AMINOTRANSFERASE INCREASED [None]
  - INFLUENZA LIKE ILLNESS [None]
  - RASH [None]
